FAERS Safety Report 5714288-8 (Version None)
Quarter: 2008Q2

REPORT INFORMATION
  Report Type: 
  Country: None (occurrence: None)
  Receive Date: 20080423
  Receipt Date: 20080423
  Transmission Date: 20081010
  Serious: Yes (Death)
  Sender: FDA-Public Use
  Company Number: None

PATIENT
  Age: 82 Year
  Sex: Male
  Weight: 77.1115 kg

DRUGS (1)
  1. HEPARIN [Suspect]
     Indication: DIALYSIS

REACTIONS (4)
  - DYSPNOEA [None]
  - FEELING ABNORMAL [None]
  - MALAISE [None]
  - PHARMACEUTICAL PRODUCT COMPLAINT [None]
